FAERS Safety Report 16976240 (Version 1)
Quarter: 2019Q4

REPORT INFORMATION
  Report Type: Report from Study
  Country: CA (occurrence: CA)
  Receive Date: 20191030
  Receipt Date: 20191030
  Transmission Date: 20200122
  Serious: Yes (Hospitalization, Other)
  Sender: FDA-Public Use
  Company Number: CA-APOPHARMA INC-2013AP005180

PATIENT
  Age: 42 Year
  Sex: Female
  Weight: 50 kg

DRUGS (8)
  1. VITAMIN D                          /00107901/ [Concomitant]
     Active Substance: ERGOCALCIFEROL
     Route: 048
     Dates: start: 2005
  2. FOLIC ACID. [Concomitant]
     Active Substance: FOLIC ACID
     Route: 048
     Dates: start: 1985
  3. DEFERIPRONE [Suspect]
     Active Substance: DEFERIPRONE
     Indication: THALASSAEMIA
     Route: 048
     Dates: start: 1995, end: 20120828
  4. DEFERIPRONE [Suspect]
     Active Substance: DEFERIPRONE
     Indication: HAEMOCHROMATOSIS
     Route: 048
     Dates: start: 201210, end: 20121206
  5. DEFERIPRONE [Suspect]
     Active Substance: DEFERIPRONE
     Dosage: 10 MG/KG, QD
     Route: 048
     Dates: start: 201303, end: 20130416
  6. NOVORAPID [Concomitant]
     Active Substance: INSULIN ASPART
     Route: 058
     Dates: start: 1991
  7. DEFERIPRONE [Suspect]
     Active Substance: DEFERIPRONE
     Dosage: UNK
  8. LANTUS XR [Concomitant]
     Active Substance: INSULIN GLARGINE
     Route: 058
     Dates: start: 2005

REACTIONS (5)
  - Agranulocytosis [Recovered/Resolved]
  - Neutropenia [Recovered/Resolved]
  - Hypersensitivity vasculitis [Recovering/Resolving]
  - Leukopenia [Recovered/Resolved]
  - Neuropathy peripheral [Recovering/Resolving]

NARRATIVE: CASE EVENT DATE: 20121206
